FAERS Safety Report 24980481 (Version 1)
Quarter: 2025Q1

REPORT INFORMATION
  Report Type: Spontaneous
  Country: US (occurrence: None)
  Receive Date: 20250214
  Receipt Date: 20250214
  Transmission Date: 20250408
  Serious: Yes (unspecified)
  Sender: FDA-CTU
  Company Number: None

PATIENT
  Age: 58 Year
  Sex: Male
  Weight: 89.1 kg

DRUGS (6)
  1. QUTENZA [Suspect]
     Active Substance: CAPSAICIN
     Indication: Neuropathy peripheral
     Dates: start: 20250130, end: 20250130
  2. ALLOPURINOL [Concomitant]
     Active Substance: ALLOPURINOL
  3. GABAPENTIN [Concomitant]
     Active Substance: GABAPENTIN
  4. CELEBREX [Concomitant]
     Active Substance: CELECOXIB
  5. TESTOSTERONE [Concomitant]
     Active Substance: TESTOSTERONE
  6. VITAMIN C [Concomitant]
     Active Substance: ASCORBIC ACID

REACTIONS (7)
  - Blister [None]
  - Blister rupture [None]
  - Pain in extremity [None]
  - Pain [None]
  - Localised infection [None]
  - Mobility decreased [None]
  - Application site vesicles [None]

NARRATIVE: CASE EVENT DATE: 20250130
